FAERS Safety Report 7935036-7 (Version None)
Quarter: 2011Q4

REPORT INFORMATION
  Report Type: 
  Country: None (occurrence: None)
  Receive Date: 20111122
  Receipt Date: 20111118
  Transmission Date: 20120403
  Serious: Yes (Hospitalization)
  Sender: FDA-Public Use
  Company Number: US-B.I. PHARMACEUTICALS,INC./RIDGEFIELD-2011-BP-23832BP

PATIENT
  Age: 81 Year
  Sex: Male

DRUGS (30)
  1. CALCIUM CITRATE [Concomitant]
  2. MULTAQ [Concomitant]
     Dosage: 800 MG
  3. BILBERRY EXTRACT [Concomitant]
  4. BUTCHER'S BROOM [Concomitant]
  5. BROMELAIN [Concomitant]
  6. ISOSORBIDE DAINITRATE [Concomitant]
     Dosage: 20 MG
  7. CHROMIUM CHLORIDE [Concomitant]
  8. RED YEAST RICE [Concomitant]
  9. CARNIPURE [Concomitant]
  10. NO FLUSH NIACIN [Concomitant]
  11. LANTUS [Concomitant]
  12. FUROSEMIDE [Concomitant]
  13. VITAMIN D [Concomitant]
  14. CO Q 10 [Concomitant]
  15. GLUCOSAMIDE AND CHONDROITIN [Concomitant]
  16. COMBIGAN [Concomitant]
     Route: 031
  17. PRADAXA [Suspect]
     Dosage: 150 MG
  18. CARTIA XT [Concomitant]
  19. VITAMIN B6 [Concomitant]
  20. ASCORBIC ACID [Concomitant]
  21. VITAMIN B-12 [Concomitant]
  22. CRANBERRY [Concomitant]
  23. BORON [Concomitant]
  24. FISH OIL [Concomitant]
  25. EL CARNITINE [Concomitant]
  26. FLORAGLO LUTEIN [Concomitant]
  27. ISOSORBIDE DINITRATE [Concomitant]
  28. GINKO [Concomitant]
  29. CINNAMON [Concomitant]
  30. TORSEMIDE [Concomitant]
     Dosage: 20 MG

REACTIONS (2)
  - HAEMORRHAGE [None]
  - EYE DISORDER [None]
